FAERS Safety Report 25808689 (Version 2)
Quarter: 2025Q3

REPORT INFORMATION
  Report Type: Spontaneous
  Country: CN (occurrence: CN)
  Receive Date: 20250916
  Receipt Date: 20250922
  Transmission Date: 20251020
  Serious: Yes (Other)
  Sender: PFIZER
  Company Number: CN-PFIZER INC-PV202500110452

PATIENT
  Age: 30 Year
  Sex: Male

DRUGS (4)
  1. PACLITAXEL [Suspect]
     Active Substance: PACLITAXEL
     Indication: Malignant ossifying fibromyxoid tumour
     Dates: start: 202012
  2. PACLITAXEL [Suspect]
     Active Substance: PACLITAXEL
     Indication: Metastases to lung
  3. CISPLATIN [Suspect]
     Active Substance: CISPLATIN
     Indication: Malignant ossifying fibromyxoid tumour
     Dates: start: 202012
  4. CISPLATIN [Suspect]
     Active Substance: CISPLATIN
     Indication: Metastases to lung

REACTIONS (3)
  - Gastrointestinal toxicity [Unknown]
  - Vomiting [Unknown]
  - Off label use [Unknown]

NARRATIVE: CASE EVENT DATE: 20201201
